FAERS Safety Report 16802293 (Version 1)
Quarter: 2019Q3

REPORT INFORMATION
  Report Type: Spontaneous
  Country: US (occurrence: US)
  Receive Date: 20190912
  Receipt Date: 20190912
  Transmission Date: 20191005
  Serious: No
  Sender: FDA-Public Use
  Company Number: US-SA-2019SA253573

PATIENT
  Age: 56 Year
  Sex: Female
  Weight: 86.18 kg

DRUGS (18)
  1. NORMAL SALINE [Concomitant]
     Active Substance: SODIUM CHLORIDE
     Dosage: 0.9 %, UNK
     Route: 042
     Dates: start: 20190321
  2. CALCIUM [Concomitant]
     Active Substance: CALCIUM
     Dosage: 1 DF, PRN
     Route: 048
     Dates: start: 20170802
  3. FABRAZYME [Suspect]
     Active Substance: AGALSIDASE BETA
     Indication: FABRY^S DISEASE
     Dosage: 0.98 MG/KG, QOW
     Route: 041
     Dates: start: 20170803
  4. DIPHENHYDRAMINE. [Concomitant]
     Active Substance: DIPHENHYDRAMINE
     Dosage: 25 MG, PRN
     Route: 048
     Dates: start: 20190321
  5. CLARITIN-D NOS [Concomitant]
     Active Substance: LORATADINE\PSEUDOEPHEDRINE SULFATE
     Dosage: 1 DF, QD
     Route: 048
     Dates: start: 20171110
  6. MELATONIN [Concomitant]
     Active Substance: MELATONIN
     Dosage: 1 DF, EVERY HOUR AS NEEDED
     Route: 048
     Dates: start: 20171107
  7. DULOXETINE. [Concomitant]
     Active Substance: DULOXETINE
     Dosage: 1 DF, BID
     Route: 048
     Dates: start: 20190116
  8. ALBUTEROL [SALBUTAMOL] [Concomitant]
     Active Substance: ALBUTEROL
     Dosage: 1 DF, Q4H
     Route: 048
     Dates: start: 20181018
  9. TRAMADOL. [Concomitant]
     Active Substance: TRAMADOL
     Dosage: 1 DF, BID
     Route: 048
     Dates: start: 20181017
  10. COENZYME Q10 [Concomitant]
     Active Substance: UBIDECARENONE
     Dosage: 1 DF, QD
     Route: 048
     Dates: start: 20170802
  11. LAVENDER OIL [Concomitant]
     Active Substance: LAVENDER OIL
     Dosage: 3 GTTS, QD
     Route: 055
     Dates: start: 20190426
  12. ACETAMINOPHEN. [Concomitant]
     Active Substance: ACETAMINOPHEN
     Dosage: 650 MG, UNK
     Route: 048
     Dates: start: 20190321
  13. STERILE WATER [Concomitant]
     Active Substance: WATER
     Dosage: 1 DF
     Route: 042
     Dates: start: 20190321
  14. MULTIVITAMINS [VITAMINS NOS] [Concomitant]
     Active Substance: VITAMINS
     Dosage: 1 DF, QD
     Route: 048
     Dates: start: 20170802
  15. SODIUM CHLORIDE. [Concomitant]
     Active Substance: SODIUM CHLORIDE
     Dosage: 0.9 %, UNK
     Route: 042
     Dates: start: 20190321
  16. EPINEPHRINE. [Concomitant]
     Active Substance: EPINEPHRINE
     Indication: ANAPHYLACTIC REACTION
     Dosage: 0.3 MG, PRN
     Route: 030
     Dates: start: 20190321
  17. ASPIRIN [ACETYLSALICYLIC ACID] [Concomitant]
     Active Substance: ASPIRIN
     Dosage: 1 DF, QD
     Route: 048
     Dates: start: 20190129
  18. FISH OIL [Concomitant]
     Active Substance: FISH OIL
     Dosage: 1 DF, QD
     Route: 048
     Dates: start: 20170802

REACTIONS (3)
  - Blood pressure increased [Recovering/Resolving]
  - Erythema [Recovering/Resolving]
  - Fatigue [Recovering/Resolving]

NARRATIVE: CASE EVENT DATE: 20190823
